FAERS Safety Report 15901421 (Version 2)
Quarter: 2019Q1

REPORT INFORMATION
  Report Type: Spontaneous
  Country: US (occurrence: US)
  Receive Date: 20190201
  Receipt Date: 20190305
  Transmission Date: 20190417
  Serious: Yes (Hospitalization)
  Sender: FDA-Public Use
  Company Number: US-PFIZER INC-2018486603

PATIENT
  Age: 78 Year
  Sex: Female
  Weight: 65 kg

DRUGS (2)
  1. IBRANCE [Suspect]
     Active Substance: PALBOCICLIB
     Indication: BREAST CANCER FEMALE
     Dosage: 100 MG, CYCLIC (TAKES 100MG ONCE IN EVENINGS WITH FOOD, TAKES 21 DAYS ON AND 7 DAYS OFF)
     Dates: start: 2018
  2. MORPHINE SULFATE. [Suspect]
     Active Substance: MORPHINE SULFATE
     Dosage: UNK

REACTIONS (4)
  - Pneumonia [Unknown]
  - Abdominal discomfort [Unknown]
  - Malaise [Unknown]
  - Hot flush [Not Recovered/Not Resolved]
